FAERS Safety Report 7552404-6 (Version None)
Quarter: 2011Q2

REPORT INFORMATION
  Report Type: 
  Country: None (occurrence: None)
  Receive Date: 20110616
  Receipt Date: 20110614
  Transmission Date: 20111010
  Serious: Yes (Death, Other)
  Sender: FDA-Public Use
  Company Number: VE-ABBOTT-11P-178-0732383-00

PATIENT
  Age: 15 Month
  Sex: Male

DRUGS (1)
  1. SEVOFLURANE [Suspect]
     Indication: MAINTENANCE OF ANAESTHESIA
     Route: 055
     Dates: start: 20110607, end: 20110607

REACTIONS (2)
  - APNOEA [None]
  - RESPIRATORY ARREST [None]
